FAERS Safety Report 21963530 (Version 1)
Quarter: 2023Q1

REPORT INFORMATION
  Report Type: Spontaneous
  Country: US (occurrence: None)
  Receive Date: 20230206
  Receipt Date: 20230206
  Transmission Date: 20230418
  Serious: Yes (Hospitalization)
  Sender: FDA-Public Use
  Company Number: None

PATIENT
  Sex: Female

DRUGS (1)
  1. IBRANCE [Suspect]
     Active Substance: PALBOCICLIB
     Route: 048
     Dates: start: 20221205

REACTIONS (6)
  - Thrombocytopenia [None]
  - Hypervolaemia [None]
  - Hypervolaemia [None]
  - Dyspnoea [None]
  - Hypoxia [None]
  - Cancer pain [None]
